FAERS Safety Report 5056139-3 (Version None)
Quarter: 2006Q3

REPORT INFORMATION
  Report Type: 
  Country: None (occurrence: None)
  Receive Date: 20060720
  Receipt Date: 20060309
  Transmission Date: 20061208
  Serious: Yes (Other)
  Sender: FDA-Public Use
  Company Number: PHHC2-003

PATIENT
  Age: 72 Year
  Sex: Male

DRUGS (3)
  1. NOGITECAN HYDROCHLORIDE [Suspect]
     Route: 042
     Dates: start: 20060213, end: 20060421
  2. CISPLATIN [Suspect]
     Dosage: 60MGM2 PER DAY
     Route: 042
     Dates: start: 20060213, end: 20060417
  3. NEUPOGEN [Concomitant]
     Indication: DRUG USE FOR UNKNOWN INDICATION
     Dosage: 75MCG PER DAY
     Route: 058
     Dates: start: 20060218, end: 20060303

REACTIONS (16)
  - ALANINE AMINOTRANSFERASE INCREASED [None]
  - ANOREXIA [None]
  - BLOOD ALKALINE PHOSPHATASE INCREASED [None]
  - BLOOD LACTATE DEHYDROGENASE INCREASED [None]
  - BLOOD UREA INCREASED [None]
  - C-REACTIVE PROTEIN INCREASED [None]
  - FATIGUE [None]
  - HAEMOGLOBIN DECREASED [None]
  - HICCUPS [None]
  - LYMPHOCYTE COUNT INCREASED [None]
  - MONOCYTE COUNT DECREASED [None]
  - NEUTROPHIL COUNT DECREASED [None]
  - PLATELET COUNT DECREASED [None]
  - RED BLOOD CELL COUNT DECREASED [None]
  - WEIGHT DECREASED [None]
  - WEIGHT INCREASED [None]
